FAERS Safety Report 5076752-7 (Version None)
Quarter: 2006Q3

REPORT INFORMATION
  Report Type: 
  Country: None (occurrence: None)
  Receive Date: 20060725
  Receipt Date: 20060505
  Transmission Date: 20061208
  Serious: Yes (Other)
  Sender: FDA-Public Use
  Company Number: 200612912BWH

PATIENT
  Age: 61 Year
  Sex: Female

DRUGS (8)
  1. NEXAVAR [Suspect]
     Indication: RENAL CELL CARCINOMA STAGE UNSPECIFIED
     Dosage: 800 MG, TOTAL DAILY, ORAL
     Route: 048
     Dates: start: 20060412
  2. ZANTAC [Concomitant]
  3. ALTACE [Concomitant]
  4. DETROL [Concomitant]
  5. DILANTIN [Concomitant]
  6. CLARITIN [Concomitant]
  7. MEVACOR [Concomitant]
  8. OSCAL [CALCIUM CARBONATE] [Concomitant]

REACTIONS (2)
  - BLOOD AMYLASE INCREASED [None]
  - LIPASE INCREASED [None]
